FAERS Safety Report 8000257-4 (Version None)
Quarter: 2011Q4

REPORT INFORMATION
  Report Type: 
  Country: None (occurrence: None)
  Receive Date: 20111222
  Receipt Date: 20111213
  Transmission Date: 20120403
  Serious: Yes (Other)
  Sender: FDA-Public Use
  Company Number: US-BAYER-2011-120718

PATIENT
  Sex: Female

DRUGS (2)
  1. YASMIN [Suspect]
     Dosage: UNK
     Dates: start: 20080804, end: 20080923
  2. YAZ [Suspect]
     Dosage: UNK
     Dates: start: 20080804, end: 20080923

REACTIONS (7)
  - EMOTIONAL DISTRESS [None]
  - GALLBLADDER INJURY [None]
  - ANHEDONIA [None]
  - PAIN [None]
  - DEEP VEIN THROMBOSIS [None]
  - PULMONARY EMBOLISM [None]
  - INJURY [None]
